FAERS Safety Report 4601767-X (Version None)
Quarter: 2005Q1

REPORT INFORMATION
  Report Type: 
  Country: None (occurrence: None)
  Receive Date: 20050131
  Receipt Date: 20041214
  Transmission Date: 20050727
  Serious: No
  Sender: FDA-Public Use
  Company Number: 200419570US

PATIENT

DRUGS (1)
  1. KETEK [Suspect]
     Indication: SINUSITIS

REACTIONS (2)
  - HEADACHE [None]
  - OCULAR HYPERAEMIA [None]
